FAERS Safety Report 5152490-7 (Version None)
Quarter: 2006Q4

REPORT INFORMATION
  Report Type: 
  Country: None (occurrence: None)
  Receive Date: 20061109
  Receipt Date: 20061025
  Transmission Date: 20070319
  Serious: Yes (Hospitalization)
  Sender: FDA-Public Use
  Company Number: 230020M06DEU

PATIENT
  Age: 29 Year
  Sex: Female
  Weight: 118 kg

DRUGS (2)
  1. REBIF [Suspect]
     Indication: RELAPSING-REMITTING MULTIPLE SCLEROSIS
     Dosage: 44 MCG, 3 IN 1 WEEKS, SUBCUTANEOUS
     Route: 058
     Dates: start: 20020101
  2. ACETAMINOPHEN [Concomitant]

REACTIONS (3)
  - CUTANEOUS SARCOIDOSIS [None]
  - LYMPHADENOPATHY MEDIASTINAL [None]
  - THROMBOCYTOPENIA [None]
